FAERS Safety Report 17995984 (Version 1)
Quarter: 2020Q3

REPORT INFORMATION
  Report Type: Report from Study
  Country: US (occurrence: US)
  Receive Date: 20200708
  Receipt Date: 20200708
  Transmission Date: 20201103
  Serious: No
  Sender: FDA-Public Use
  Company Number: US-INCYTE CORPORATION-2020IN005021

PATIENT

DRUGS (2)
  1. JAKAFI [Suspect]
     Active Substance: RUXOLITINIB
     Indication: POLYCYTHAEMIA VERA
     Dosage: 20 MILLIGRAM, BID
     Route: 048
  2. JAKAFI [Suspect]
     Active Substance: RUXOLITINIB
     Dosage: 20 MG (1/2 TABLET), BID
     Route: 048
     Dates: start: 202005

REACTIONS (2)
  - Wrong technique in product usage process [Unknown]
  - Hepatic pain [Recovered/Resolved]

NARRATIVE: CASE EVENT DATE: 202005
